FAERS Safety Report 10866834 (Version 1)
Quarter: 2015Q1

REPORT INFORMATION
  Report Type: Spontaneous
  Country: US (occurrence: US)
  Receive Date: 20150225
  Receipt Date: 20150225
  Transmission Date: 20150721
  Serious: Yes (Other)
  Sender: FDA-Public Use
  Company Number: US-RANBAXY-2015US-93301

PATIENT
  Age: 62 Year
  Sex: Female

DRUGS (1)
  1. IBUPROFEN. [Suspect]
     Active Substance: IBUPROFEN
     Indication: RADICULAR PAIN
     Dosage: 400 MG, QID
     Route: 065

REACTIONS (3)
  - Proteinuria [Recovered/Resolved]
  - Hypokalaemia [Recovered/Resolved]
  - Hypertensive crisis [Recovered/Resolved]
